FAERS Safety Report 8177523-5 (Version None)
Quarter: 2012Q1

REPORT INFORMATION
  Report Type: 
  Country: None (occurrence: None)
  Receive Date: 20120301
  Receipt Date: 20120223
  Transmission Date: 20120608
  Serious: Yes (Hospitalization)
  Sender: FDA-Public Use
  Company Number: US-ACTELION-A-US2012-61750

PATIENT

DRUGS (4)
  1. EPOPROSTENOL SODIUM [Suspect]
     Indication: PULMONARY ARTERIAL HYPERTENSION
     Dosage: 50 NG/KG, PER MIN
     Route: 042
     Dates: start: 20120119
  2. COUMADIN [Concomitant]
  3. TRACLEER [Concomitant]
  4. SILDENAFIL [Concomitant]

REACTIONS (3)
  - HEART RATE INCREASED [None]
  - PYREXIA [None]
  - GASTROENTERITIS VIRAL [None]
